FAERS Safety Report 9544235 (Version 1)
Quarter: 2013Q3

REPORT INFORMATION
  Report Type: Report from Study
  Country: FR (occurrence: FR)
  Receive Date: 20130923
  Receipt Date: 20130923
  Transmission Date: 20140515
  Serious: Yes (Hospitalization)
  Sender: FDA-Public Use
  Company Number: FR-TEVA-431929ISR

PATIENT
  Age: 58 Year
  Sex: Male

DRUGS (1)
  1. EFFENTORA [Suspect]
     Route: 002

REACTIONS (2)
  - Liver disorder [Unknown]
  - Infection [Unknown]
